FAERS Safety Report 9301591 (Version 3)
Quarter: 2013Q4

REPORT INFORMATION
  Report Type: Report from Study
  Country: US (occurrence: US)
  Receive Date: 20130521
  Receipt Date: 20131022
  Transmission Date: 20140711
  Serious: Yes (Hospitalization, Other)
  Sender: FDA-Public Use
  Company Number: US-ALEXION-A201300864

PATIENT
  Sex: 0

DRUGS (1)
  1. SOLIRIS [Suspect]
     Indication: PAROXYSMAL NOCTURNAL HAEMOGLOBINURIA
     Dosage: 1500 MG, Q2W
     Route: 042

REACTIONS (8)
  - Subcutaneous abscess [Recovered/Resolved]
  - Leukocytosis [Recovered/Resolved]
  - Haemoglobin decreased [Recovering/Resolving]
  - Cellulitis [Unknown]
  - Anaemia [Recovered/Resolved]
  - Pyrexia [Unknown]
  - Oedema peripheral [Not Recovered/Not Resolved]
  - Erythema [Not Recovered/Not Resolved]
